FAERS Safety Report 5781090-0 (Version None)
Quarter: 2008Q2

REPORT INFORMATION
  Report Type: 
  Country: None (occurrence: None)
  Receive Date: 20080618
  Receipt Date: 20080606
  Transmission Date: 20081010
  Serious: Yes (Hospitalization)
  Sender: FDA-Public Use
  Company Number: PAR_02210_2008

PATIENT
  Age: 77 Year
  Sex: Female
  Weight: 51.2565 kg

DRUGS (10)
  1. MEGACE ES [Suspect]
     Indication: DECREASED APPETITE
     Dosage: 5 ML QD ORAL, 5 ML QOD ORAL, 5 ML 1X/3 DAYS ORAL, 5 ML QD ORAL, 5 ML QOD ORAL
     Route: 048
     Dates: start: 20070501, end: 20071106
  2. MEGACE ES [Suspect]
     Indication: WEIGHT DECREASED
     Dosage: 5 ML QD ORAL, 5 ML QOD ORAL, 5 ML 1X/3 DAYS ORAL, 5 ML QD ORAL, 5 ML QOD ORAL
     Route: 048
     Dates: start: 20070501, end: 20071106
  3. MEGACE ES [Suspect]
     Indication: DECREASED APPETITE
     Dosage: 5 ML QD ORAL, 5 ML QOD ORAL, 5 ML 1X/3 DAYS ORAL, 5 ML QD ORAL, 5 ML QOD ORAL
     Route: 048
     Dates: start: 20071106, end: 20080101
  4. MEGACE ES [Suspect]
     Indication: WEIGHT DECREASED
     Dosage: 5 ML QD ORAL, 5 ML QOD ORAL, 5 ML 1X/3 DAYS ORAL, 5 ML QD ORAL, 5 ML QOD ORAL
     Route: 048
     Dates: start: 20071106, end: 20080101
  5. MEGACE ES [Suspect]
     Indication: DECREASED APPETITE
     Dosage: 5 ML QD ORAL, 5 ML QOD ORAL, 5 ML 1X/3 DAYS ORAL, 5 ML QD ORAL, 5 ML QOD ORAL
     Route: 048
     Dates: start: 20080401, end: 20080510
  6. MEGACE ES [Suspect]
     Indication: WEIGHT DECREASED
     Dosage: 5 ML QD ORAL, 5 ML QOD ORAL, 5 ML 1X/3 DAYS ORAL, 5 ML QD ORAL, 5 ML QOD ORAL
     Route: 048
     Dates: start: 20080401, end: 20080510
  7. MEGACE ES [Suspect]
     Indication: DECREASED APPETITE
     Dosage: 5 ML QD ORAL, 5 ML QOD ORAL, 5 ML 1X/3 DAYS ORAL, 5 ML QD ORAL, 5 ML QOD ORAL
     Route: 048
     Dates: start: 20080101
  8. MEGACE ES [Suspect]
     Indication: WEIGHT DECREASED
     Dosage: 5 ML QD ORAL, 5 ML QOD ORAL, 5 ML 1X/3 DAYS ORAL, 5 ML QD ORAL, 5 ML QOD ORAL
     Route: 048
     Dates: start: 20080101
  9. MEGACE ES [Suspect]
     Indication: DECREASED APPETITE
     Dosage: 5 ML QD ORAL, 5 ML QOD ORAL, 5 ML 1X/3 DAYS ORAL, 5 ML QD ORAL, 5 ML QOD ORAL
     Route: 048
     Dates: start: 20080514
  10. MEGACE ES [Suspect]
     Indication: WEIGHT DECREASED
     Dosage: 5 ML QD ORAL, 5 ML QOD ORAL, 5 ML 1X/3 DAYS ORAL, 5 ML QD ORAL, 5 ML QOD ORAL
     Route: 048
     Dates: start: 20080514

REACTIONS (5)
  - BRONCHITIS [None]
  - DECREASED APPETITE [None]
  - DRUG EFFECT DECREASED [None]
  - PHARMACEUTICAL PRODUCT COMPLAINT [None]
  - THERAPY CESSATION [None]
